FAERS Safety Report 7250014-1 (Version None)
Quarter: 2011Q1

REPORT INFORMATION
  Report Type: 
  Country: None (occurrence: None)
  Receive Date: 20110121
  Receipt Date: 20110121
  Transmission Date: 20110831
  Serious: Yes (Hospitalization)
  Sender: FDA-Public Use
  Company Number: None

PATIENT
  Sex: Male
  Weight: 91.5 kg

DRUGS (3)
  1. EVEROLIMUS (RAD-001) 2.5MG PO DAILY [Suspect]
     Indication: PROSTATE CANCER
     Dosage: 2.5 MG DAILY PO
     Route: 048
     Dates: start: 20101006
  2. BEVACIZUMAB LAST DOSE 10/26/2010 (1398MG) [Suspect]
     Indication: PROSTATE CANCER
     Dosage: 15 MG/KG D1 Q 21 DAYS IV
     Route: 042
     Dates: start: 20101005, end: 20101026
  3. DOCETAXEL [Suspect]
     Indication: PROSTATE CANCER
     Dosage: 75 MG/M2 D1 Q 21 DAYS IV
     Route: 042
     Dates: start: 20101005, end: 20101026

REACTIONS (2)
  - FATIGUE [None]
  - SMALL INTESTINAL OBSTRUCTION [None]
